FAERS Safety Report 5509662-9 (Version None)
Quarter: 2007Q4

REPORT INFORMATION
  Report Type: 
  Country: None (occurrence: None)
  Receive Date: 20071108
  Receipt Date: 20071102
  Transmission Date: 20080405
  Serious: Yes (Other)
  Sender: FDA-Public Use
  Company Number: PHRM2007FR02406

PATIENT
  Age: 58 Year
  Sex: Female
  Weight: 71 kg

DRUGS (5)
  1. EXFORGE [Suspect]
     Indication: HYPERTENSION
     Dosage: 1 DF, QD
     Route: 048
     Dates: start: 20070914, end: 20071016
  2. NEO-MERCAZOLE TAB [Concomitant]
     Indication: BASEDOW'S DISEASE
     Dosage: 20 MG, QD
     Dates: start: 20070216
  3. PROPRANOLOL [Concomitant]
     Indication: SINUS TACHYCARDIA
     Dosage: 20 MG, BID
     Dates: start: 20070216
  4. LEVOTHYROXINE SODIUM [Concomitant]
     Indication: BASEDOW'S DISEASE
     Dosage: 50 UG, QD
     Dates: start: 20070216
  5. CLIMAXOL [Concomitant]
     Dosage: 10 DROPS/DAY
     Dates: start: 20070901

REACTIONS (4)
  - BREAST DISCOMFORT [None]
  - BREAST PAIN [None]
  - GYNAECOMASTIA [None]
  - METRORRHAGIA [None]
